FAERS Safety Report 6569930-9 (Version None)
Quarter: 2010Q1

REPORT INFORMATION
  Report Type: 
  Country: None (occurrence: None)
  Receive Date: 20100204
  Receipt Date: 20100202
  Transmission Date: 20100710
  Serious: Yes (Death, Life-Threatening)
  Sender: FDA-Public Use
  Company Number: PHHO2010FR01348

PATIENT
  Sex: Female

DRUGS (25)
  1. STI571/CGP57148B T35717+TAB [Suspect]
     Indication: ACUTE LYMPHOCYTIC LEUKAEMIA
     Dosage: UNK
     Route: 048
     Dates: start: 20100105, end: 20100120
  2. STI571/CGP57148B T35717+TAB [Suspect]
     Dosage: UNK
  3. CYCLOPHOSPHAMIDE [Concomitant]
  4. VINCRISTINE [Concomitant]
  5. METHOTREXATE [Concomitant]
  6. DOXORUBICIN HCL [Concomitant]
  7. DEXAMETASON [Concomitant]
  8. DEPO-MEDROL [Concomitant]
  9. NEULASTA [Concomitant]
  10. ARACYTINE [Concomitant]
  11. ZYLORIC [Concomitant]
  12. CIPROFLOXACIN HCL [Concomitant]
  13. REQUIP [Concomitant]
  14. OSTEOGEL [Concomitant]
  15. MANTADIX [Concomitant]
  16. ZELITREX [Concomitant]
  17. PERFALGAN [Concomitant]
  18. LASILIX [Concomitant]
  19. KYTRIL [Concomitant]
  20. TIENAM [Concomitant]
  21. ATARAX [Concomitant]
  22. FORLAX [Concomitant]
  23. TAZOCILLINE [Concomitant]
  24. NEXIUM [Concomitant]
  25. AMIKIN [Concomitant]

REACTIONS (7)
  - CARDIAC ARREST [None]
  - COMA [None]
  - ENDOTRACHEAL INTUBATION [None]
  - KLEBSIELLA SEPSIS [None]
  - MECHANICAL VENTILATION [None]
  - PYREXIA [None]
  - RESPIRATORY DISTRESS [None]
